FAERS Safety Report 7244190-4 (Version None)
Quarter: 2011Q1

REPORT INFORMATION
  Report Type: 
  Country: None (occurrence: None)
  Receive Date: 20110125
  Receipt Date: 20110112
  Transmission Date: 20110831
  Serious: Yes (Life-Threatening, Other)
  Sender: FDA-Public Use
  Company Number: GB-MYLANLABS-2010S1021611

PATIENT
  Age: 36 Year
  Sex: Female

DRUGS (2)
  1. CITALOPRAM [Suspect]
     Indication: DEPRESSION
     Route: 048
     Dates: start: 20100907, end: 20101106
  2. ZAPAIN [Concomitant]
     Indication: ARTHRALGIA
     Route: 048
     Dates: start: 20101005

REACTIONS (2)
  - OBSESSIVE THOUGHTS [None]
  - SUICIDAL IDEATION [None]
